FAERS Safety Report 23351681 (Version 2)
Quarter: 2024Q1

REPORT INFORMATION
  Report Type: Report from Study
  Country: GB (occurrence: GB)
  Receive Date: 20231229
  Receipt Date: 20240131
  Transmission Date: 20240409
  Serious: Yes (Other)
  Sender: FDA-Public Use
  Company Number: GB-SANDOZ-SDZ2023GB044031

PATIENT
  Sex: Female

DRUGS (1)
  1. HYRIMOZ [Suspect]
     Active Substance: ADALIMUMAB-ADAZ
     Indication: Colitis ulcerative
     Dosage: 40 MG, Q2W
     Route: 058
     Dates: start: 20230918

REACTIONS (5)
  - Colitis ulcerative [Unknown]
  - Rhinorrhoea [Unknown]
  - Fatigue [Unknown]
  - Drug ineffective [Unknown]
  - Wrong technique in product usage process [Unknown]
